FAERS Safety Report 6601499-2 (Version None)
Quarter: 2010Q1

REPORT INFORMATION
  Report Type: 
  Country: None (occurrence: None)
  Receive Date: 20100225
  Receipt Date: 20100222
  Transmission Date: 20100710
  Serious: Yes (Hospitalization)
  Sender: FDA-Public Use
  Company Number: DE-ROXANE LABORATORIES, INC.-2010-RO-00185RO

PATIENT
  Age: 21 Year
  Sex: Female

DRUGS (11)
  1. AZATHIOPRINE [Suspect]
     Indication: COLITIS ULCERATIVE
  2. GENTAMICIN [Suspect]
     Indication: EVIDENCE BASED TREATMENT
  3. GENTAMICIN [Suspect]
     Indication: PYREXIA
  4. GENTAMICIN [Suspect]
     Indication: NEUTROPENIA
  5. CEFTAZIDIME [Suspect]
     Indication: EVIDENCE BASED TREATMENT
  6. CEFTAZIDIME [Suspect]
     Indication: PYREXIA
  7. CEFTAZIDIME [Suspect]
     Indication: NEUTROPENIA
  8. METRONIDAZOLE [Suspect]
     Indication: EVIDENCE BASED TREATMENT
  9. METRONIDAZOLE [Suspect]
     Indication: PYREXIA
  10. METRONIDAZOLE [Suspect]
     Indication: NEUTROPENIA
  11. CORTICOSTEROIDS [Concomitant]
     Indication: EPSTEIN-BARR VIRUS INFECTION

REACTIONS (8)
  - CHOLECYSTITIS ACUTE [None]
  - COLD AGGLUTININS POSITIVE [None]
  - EPSTEIN-BARR VIRUS INFECTION [None]
  - HAEMOLYTIC ANAEMIA [None]
  - HEPATITIS CHOLESTATIC [None]
  - INFECTIOUS MONONUCLEOSIS [None]
  - PNEUMONIA [None]
  - SEPSIS [None]
